FAERS Safety Report 5729831-2 (Version None)
Quarter: 2008Q2

REPORT INFORMATION
  Report Type: 
  Country: None (occurrence: None)
  Receive Date: 20080501
  Receipt Date: 20080422
  Transmission Date: 20081010
  Serious: Yes (Death, Life-Threatening, Hospitalization)
  Sender: FDA-Public Use
  Company Number: 000579

PATIENT
  Age: 23 Year
  Sex: Male

DRUGS (7)
  1. BUSULFEX [Suspect]
     Dosage: 9.4 ML, QID; INTRAVENOUS
     Route: 042
     Dates: start: 20070125, end: 20070128
  2. FLUDARABINE PHOSPHATE [Concomitant]
  3. CYCLOPHOSPHAMIDE [Concomitant]
  4. VALPROATE SODIUM [Concomitant]
  5. NARTOGRASTIM (NARTOGRASTIM) [Concomitant]
  6. METHOTREXATE [Concomitant]
  7. TACROLIMUS [Concomitant]

REACTIONS (15)
  - BONE MARROW TRANSPLANT REJECTION [None]
  - CONVULSION [None]
  - CYTOKINE STORM [None]
  - DIARRHOEA [None]
  - ENCEPHALITIS VIRAL [None]
  - ENGRAFTMENT SYNDROME [None]
  - GRAFT VERSUS HOST DISEASE [None]
  - LIVER DISORDER [None]
  - MALAISE [None]
  - RENAL FAILURE ACUTE [None]
  - STAPHYLOCOCCAL INFECTION [None]
  - STAPHYLOCOCCAL SCALDED SKIN SYNDROME [None]
  - STAPHYLOCOCCAL SEPSIS [None]
  - STOMATITIS [None]
  - THROMBOTIC MICROANGIOPATHY [None]
